FAERS Safety Report 24406619 (Version 1)
Quarter: 2024Q4

REPORT INFORMATION
  Report Type: Spontaneous
  Country: FR (occurrence: FR)
  Receive Date: 20241007
  Receipt Date: 20241007
  Transmission Date: 20250114
  Serious: Yes (Disabling)
  Sender: B BRAUN
  Company Number: FR-B.Braun Medical Inc.-2162584

PATIENT
  Age: 15 Year
  Sex: Male
  Weight: 38.1 kg

DRUGS (11)
  1. MEROPENEM [Suspect]
     Active Substance: MEROPENEM
     Indication: Sepsis
     Dates: start: 20240217, end: 20240226
  2. AMIKACIN [Suspect]
     Active Substance: AMIKACIN
  3. HYDROCORTISONE [Concomitant]
     Active Substance: HYDROCORTISONE
  4. CYCLOPHOSPHAMIDE [Suspect]
     Active Substance: CYCLOPHOSPHAMIDE
  5. CYTARABINE [Suspect]
     Active Substance: CYTARABINE
  6. VINCRISTINE [Suspect]
     Active Substance: VINCRISTINE
  7. METHOTREXATE [Suspect]
     Active Substance: METHOTREXATE
  8. RITUXIMAB [Suspect]
     Active Substance: RITUXIMAB
  9. VANCOMYCIN [Suspect]
     Active Substance: VANCOMYCIN
  10. ETOPOSIDE [Suspect]
     Active Substance: ETOPOSIDE
  11. DOXORUBICIN [Suspect]
     Active Substance: DOXORUBICIN

REACTIONS (1)
  - Quadriparesis [Not Recovered/Not Resolved]
